FAERS Safety Report 11086756 (Version 1)
Quarter: 2015Q2

REPORT INFORMATION
  Report Type: Spontaneous
  Country: US (occurrence: None)
  Receive Date: 20150501
  Receipt Date: 20150501
  Transmission Date: 20150821
  Serious: Yes (Other)
  Sender: FDA-Public Use
  Company Number: None

PATIENT
  Age: 46 Year
  Sex: Male
  Weight: 79.38 kg

DRUGS (6)
  1. SOFOSBUVIR [Concomitant]
     Active Substance: SOFOSBUVIR
  2. RIBAVIRIN. [Suspect]
     Active Substance: RIBAVIRIN
     Indication: ACUTE HEPATITIS C
     Route: 048
     Dates: start: 20140710, end: 20140714
  3. RIFAXIMIN [Concomitant]
     Active Substance: RIFAXIMIN
  4. LACTULOSE. [Concomitant]
     Active Substance: LACTULOSE
  5. RIBAVIRIN. [Suspect]
     Active Substance: RIBAVIRIN
     Indication: HEPATIC FAILURE
     Route: 048
     Dates: start: 20140710, end: 20140714
  6. PREDNISONE. [Concomitant]
     Active Substance: PREDNISONE

REACTIONS (4)
  - Haemolytic anaemia [None]
  - Blood lactate dehydrogenase increased [None]
  - Haptoglobin decreased [None]
  - Haemoglobin decreased [None]

NARRATIVE: CASE EVENT DATE: 20140714
